FAERS Safety Report 8827905 (Version 1)
Quarter: 2012Q4

REPORT INFORMATION
  Report Type: 
  Country: US (occurrence: US)
  Receive Date: 20121005
  Receipt Date: 20121005
  Transmission Date: 20130627
  Serious: No
  Sender: FDA-Public Use
  Company Number: US-VERTEX PHARMACEUTICAL INC.-2012-021338

PATIENT

DRUGS (2)
  1. INCIVEK [Suspect]
     Indication: HEPATITIS C
     Dosage: 750 UNK, UNK
     Route: 048
  2. RIBAVIRIN [Suspect]
     Indication: HEPATITIS C
     Dosage: UNK

REACTIONS (1)
  - Decreased appetite [Unknown]
